FAERS Safety Report 21627901 (Version 1)
Quarter: 2022Q4

REPORT INFORMATION
  Report Type: Spontaneous
  Country: IL (occurrence: IL)
  Receive Date: 20221122
  Receipt Date: 20221122
  Transmission Date: 20230113
  Serious: Yes (Hospitalization)
  Sender: FDA-Public Use
  Company Number: IL-FreseniusKabi-FK202216411

PATIENT
  Age: 45 Year
  Sex: Male

DRUGS (12)
  1. CEFAZOLIN SODIUM [Suspect]
     Active Substance: CEFAZOLIN SODIUM
     Indication: Antibiotic therapy
     Dates: start: 20220418
  2. PARACETAMOL FRESENIUS 10mg/ml [Concomitant]
  3. Gentamicin Teva 80 mg/2 ml [Concomitant]
  4. Folic acid 5 mg [Concomitant]
  5. FUROSEMIDE [Concomitant]
     Active Substance: FUROSEMIDE
  6. ENOXAPARIN SODIUM [Concomitant]
     Active Substance: ENOXAPARIN SODIUM
  7. Calciless Tablets [Concomitant]
  8. Rifampicin 300mg [Concomitant]
  9. MYDRAMIDE [Concomitant]
  10. Coumadin 2.5 MG [Concomitant]
  11. Nexium Tablets 40 mg [Concomitant]
  12. FUROSEMIDE S.A.L.F. 20 mg/ 2ml [Concomitant]

REACTIONS (2)
  - Muscular weakness [Unknown]
  - Paraesthesia [Unknown]
